FAERS Safety Report 21810864 (Version 1)
Quarter: 2023Q1

REPORT INFORMATION
  Report Type: Spontaneous
  Country: US (occurrence: US)
  Receive Date: 20230103
  Receipt Date: 20230103
  Transmission Date: 20230417
  Serious: Yes (Life-Threatening, Other)
  Sender: FDA-Public Use
  Company Number: US-BAYER-2022A174346

PATIENT
  Age: 60 Year
  Sex: Female

DRUGS (3)
  1. CORICIDIN HBP COLD AND FLU [Suspect]
     Active Substance: ACETAMINOPHEN\CHLORPHENIRAMINE MALEATE
     Indication: Hypersensitivity
     Dosage: 4 DF (EVERY 4 HOURS AND TOOK ANOTHER 2 PILLS)
     Route: 048
     Dates: start: 20221218, end: 20221218
  2. CORICIDIN HBP COLD AND FLU [Suspect]
     Active Substance: ACETAMINOPHEN\CHLORPHENIRAMINE MALEATE
     Indication: Nasopharyngitis
  3. BAYER LOW DOSE [Suspect]
     Active Substance: ASPIRIN
     Indication: Cardiac disorder
     Dosage: UNK
     Route: 048
     Dates: start: 20221221

REACTIONS (6)
  - Choking [Recovered/Resolved]
  - Dyspnoea [Recovered/Resolved]
  - Swelling face [Unknown]
  - Rash [Unknown]
  - Rash papular [Unknown]
  - Palpitations [Unknown]

NARRATIVE: CASE EVENT DATE: 20221218
